FAERS Safety Report 7114563-9 (Version None)
Quarter: 2010Q4

REPORT INFORMATION
  Report Type: 
  Country: None (occurrence: None)
  Receive Date: 20101120
  Receipt Date: 20101110
  Transmission Date: 20110411
  Serious: Yes (Hospitalization, Other)
  Sender: FDA-Public Use
  Company Number: JP-B.I. PHARMACEUTICALS,INC./RIDGEFIELD-2010-DE-06249GD

PATIENT
  Age: 72 Year
  Sex: Male

DRUGS (1)
  1. MELOXICAM [Suspect]

REACTIONS (2)
  - CEREBRAL INFARCTION [None]
  - GASTRIC ULCER HAEMORRHAGE [None]
